FAERS Safety Report 7799195-1 (Version None)
Quarter: 2011Q4

REPORT INFORMATION
  Report Type: 
  Country: None (occurrence: None)
  Receive Date: 20111006
  Receipt Date: 20110930
  Transmission Date: 20120403
  Serious: No
  Sender: FDA-Public Use
  Company Number: US-PFIZER INC-2011235441

PATIENT

DRUGS (3)
  1. ZYVOX [Suspect]
     Indication: WOUND INFECTION STAPHYLOCOCCAL
     Dosage: UNK
  2. ZYVOX [Suspect]
     Indication: ENTEROCOCCAL INFECTION
  3. ZYVOX [Suspect]
     Indication: URINARY TRACT INFECTION ENTEROCOCCAL

REACTIONS (1)
  - DRUG RESISTANCE [None]
